FAERS Safety Report 7934126-2 (Version None)
Quarter: 2011Q4

REPORT INFORMATION
  Report Type: 
  Country: None (occurrence: None)
  Receive Date: 20111118
  Receipt Date: 20111104
  Transmission Date: 20120403
  Serious: Yes (Other)
  Sender: FDA-Public Use
  Company Number: 1000025502

PATIENT
  Sex: Female

DRUGS (3)
  1. TANDOSPIRONE (TANDOSPIRONE) (TANDOSPIRONE) [Concomitant]
  2. LEXAPRO [Suspect]
     Indication: PRODUCT USED FOR UNKNOWN INDICATION
     Dosage: 10 MG (10 MG, 1 IN 1 D), ORAL
     Route: 048
     Dates: start: 20111001
  3. DEPAS (ETIZOLAM) [Suspect]
     Indication: PRODUCT USED FOR UNKNOWN INDICATION
     Dosage: ORAL
     Route: 048
     Dates: start: 20110101

REACTIONS (3)
  - HEADACHE [None]
  - CONFUSIONAL STATE [None]
  - MUSCLE TWITCHING [None]
